FAERS Safety Report 10245189 (Version 1)
Quarter: 2014Q2

REPORT INFORMATION
  Report Type: Spontaneous
  Country: US (occurrence: US)
  Receive Date: 20140618
  Receipt Date: 20140618
  Transmission Date: 20141212
  Serious: Yes (Hospitalization, Other)
  Sender: FDA-Public Use
  Company Number: US-ABBVIE-14P-163-1245793-00

PATIENT
  Age: 86 Year
  Sex: Female
  Weight: 56.75 kg

DRUGS (8)
  1. HUMIRA [Suspect]
     Indication: RHEUMATOID ARTHRITIS
     Route: 058
     Dates: start: 20090305, end: 20111109
  2. HUMIRA [Suspect]
     Route: 058
     Dates: start: 20120613
  3. CREON [Concomitant]
     Indication: PRODUCT USED FOR UNKNOWN INDICATION
  4. METOPROLOL [Concomitant]
     Indication: PRODUCT USED FOR UNKNOWN INDICATION
  5. SYNTHROID [Concomitant]
     Indication: PRODUCT USED FOR UNKNOWN INDICATION
  6. PROTONIX [Concomitant]
     Indication: PRODUCT USED FOR UNKNOWN INDICATION
  7. CALCIUM [Concomitant]
     Indication: PRODUCT USED FOR UNKNOWN INDICATION
  8. VITAMIN D [Concomitant]
     Indication: PRODUCT USED FOR UNKNOWN INDICATION

REACTIONS (23)
  - Dysarthria [Recovered/Resolved]
  - Muscular weakness [Unknown]
  - Transient ischaemic attack [Recovered/Resolved]
  - Hemianopia [Unknown]
  - Cerebrovascular accident [Unknown]
  - Visual impairment [Unknown]
  - Cataract [Recovered/Resolved]
  - Transient ischaemic attack [Unknown]
  - Hemiparesis [Unknown]
  - Convulsion [Unknown]
  - Atrioventricular block complete [Unknown]
  - Rhythm idioventricular [Unknown]
  - Optic ischaemic neuropathy [Recovered/Resolved with Sequelae]
  - Vitreous floaters [Unknown]
  - Blindness unilateral [Not Recovered/Not Resolved]
  - Corneal dystrophy [Unknown]
  - Temporal arteritis [Unknown]
  - Abdominal hernia [Recovered/Resolved]
  - Arthralgia [Recovered/Resolved]
  - Balance disorder [Not Recovered/Not Resolved]
  - Fall [Recovered/Resolved]
  - Contusion [Recovering/Resolving]
  - Skin abrasion [Recovering/Resolving]
